FAERS Safety Report 8061629-5 (Version None)
Quarter: 2012Q1

REPORT INFORMATION
  Report Type: 
  Country: None (occurrence: None)
  Receive Date: 20120123
  Receipt Date: 20120113
  Transmission Date: 20120608
  Serious: Yes (Hospitalization)
  Sender: FDA-Public Use
  Company Number: US-AMGEN-USASP2012002707

PATIENT
  Age: 58 Year
  Sex: Female

DRUGS (1)
  1. ENBREL [Suspect]
     Indication: PSORIASIS
     Dosage: 50 MG, QWK

REACTIONS (7)
  - CORONARY ARTERY DISEASE [None]
  - CONTUSION [None]
  - FATIGUE [None]
  - URINARY TRACT INFECTION [None]
  - PSORIASIS [None]
  - COUGH [None]
  - UPPER RESPIRATORY TRACT INFECTION [None]
